FAERS Safety Report 16923883 (Version 1)
Quarter: 2019Q4

REPORT INFORMATION
  Report Type: Spontaneous
  Country: US (occurrence: US)
  Receive Date: 20191016
  Receipt Date: 20191016
  Transmission Date: 20200122
  Serious: Yes (Hospitalization, Other)
  Sender: FDA-Public Use
  Company Number: NVSC2019US000961

PATIENT
  Age: 52 Year
  Sex: Female

DRUGS (2)
  1. INFLIXIMAB [Suspect]
     Active Substance: INFLIXIMAB
     Indication: RHEUMATOID ARTHRITIS
     Dosage: UNK
     Route: 065
  2. METHOTREXATE. [Suspect]
     Active Substance: METHOTREXATE
     Indication: RHEUMATOID ARTHRITIS
     Dosage: UNK
     Route: 065

REACTIONS (9)
  - Pyrexia [Unknown]
  - Transaminases increased [Unknown]
  - Tachypnoea [Unknown]
  - Histoplasmosis disseminated [Unknown]
  - Acute kidney injury [Unknown]
  - Dyspnoea [Unknown]
  - Pneumonia cytomegaloviral [Recovering/Resolving]
  - Anaemia [Unknown]
  - Thrombocytopenia [Unknown]
